FAERS Safety Report 4873525-2 (Version None)
Quarter: 2005Q4

REPORT INFORMATION
  Report Type: 
  Country: None (occurrence: None)
  Receive Date: 20051201
  Receipt Date: 20050829
  Transmission Date: 20060501
  Serious: No
  Sender: FDA-Public Use
  Company Number: 2005PV001447

PATIENT
  Age: 37 Year
  Sex: Female
  Weight: 160.1197 kg

DRUGS (8)
  1. BYETTA [Suspect]
     Indication: DIABETES MELLITUS NON-INSULIN-DEPENDENT
     Dosage: 5 MCG; BID; SC
     Route: 058
     Dates: start: 20050808
  2. GLUCOTROL [Concomitant]
  3. TRICOR [Concomitant]
  4. CARDIZEM LA [Concomitant]
  5. TORSEMIDE [Concomitant]
  6. SINGULAIR [Concomitant]
  7. BUPROPION [Concomitant]
  8. ASPIRIN [Concomitant]

REACTIONS (1)
  - INJECTION SITE HAEMORRHAGE [None]
